FAERS Safety Report 20884075 (Version 1)
Quarter: 2022Q2

REPORT INFORMATION
  Report Type: Spontaneous
  Country: US (occurrence: None)
  Receive Date: 20220527
  Receipt Date: 20220527
  Transmission Date: 20220721
  Serious: No
  Sender: FDA-Public Use
  Company Number: None

PATIENT
  Age: 67 Year
  Sex: Male
  Weight: 83.25 kg

DRUGS (10)
  1. CILGAVIMAB\TIXAGEVIMAB [Suspect]
     Active Substance: CILGAVIMAB\TIXAGEVIMAB
     Indication: COVID-19
     Dosage: OTHER QUANTITY : 2 INJECTION(S);?
     Route: 030
     Dates: start: 20220526, end: 20220526
  2. AMLODIPINE [Concomitant]
     Active Substance: AMLODIPINE BESYLATE
  3. LOSARTAN [Concomitant]
     Active Substance: LOSARTAN
  4. ACYCLOVIR [Concomitant]
     Active Substance: ACYCLOVIR
  5. DEXMETHYLPHENIDATE [Concomitant]
     Active Substance: DEXMETHYLPHENIDATE
  6. BORTEZOMIB [Concomitant]
     Active Substance: BORTEZOMIB
  7. REVLIMID [Concomitant]
     Active Substance: LENALIDOMIDE
  8. DEXAMETHASONE [Concomitant]
     Active Substance: DEXAMETHASONE
  9. LOW-DOSE ASPIRIN [Concomitant]
     Active Substance: ASPIRIN
  10. TYLENOL [Concomitant]
     Active Substance: ACETAMINOPHEN

REACTIONS (3)
  - Urticaria [None]
  - Erythema [None]
  - Injection related reaction [None]

NARRATIVE: CASE EVENT DATE: 20220526
